FAERS Safety Report 5057305-3 (Version None)
Quarter: 2006Q2

REPORT INFORMATION
  Report Type: 
  Country: None (occurrence: None)
  Receive Date: 20060622
  Receipt Date: 20060313
  Transmission Date: 20061013
  Serious: Yes (Death)
  Sender: FDA-Public Use
  Company Number: US-JNJFOC-20060103249

PATIENT
  Age: 49 Year
  Sex: Male
  Weight: 80.2867 kg

DRUGS (10)
  1. DURAGESIC-100 [Suspect]
     Indication: PAIN
     Dosage: SEE IMAGE
     Route: 062
     Dates: start: 20020521, end: 20020828
  2. DURAGESIC-100 [Suspect]
     Indication: PAIN
     Dosage: SEE IMAGE
     Route: 062
     Dates: start: 20020828, end: 20030131
  3. DURAGESIC-100 [Suspect]
     Indication: PAIN
     Dosage: SEE IMAGE
     Route: 062
     Dates: start: 20030819, end: 20030916
  4. DURAGESIC-100 [Suspect]
     Indication: PAIN
     Dosage: SEE IMAGE
     Route: 062
     Dates: start: 20030916
  5. DURAGESIC-100 [Suspect]
     Indication: PAIN
     Dosage: SEE IMAGE
     Route: 062
     Dates: start: 20040226
  6. HYDROCODONE (HYDROCODONE) [Suspect]
     Indication: PAIN
     Dosage: 10 MG HYDROCODONE/325 MG ACETAMINOPHEN, 1 AND 1/2 TABLETS, 1 IN 6 HOURS
  7. FLEXERIL [Concomitant]
  8. DIPHEN (ALL OTHER THERAPEUTIC PRODUCTS) [Concomitant]
  9. VI-Q-TUSS (PHENERGAN VC W;CODEINE) [Concomitant]
  10. ZOLOFT [Concomitant]

REACTIONS (7)
  - APPLICATION SITE DERMATITIS [None]
  - APPLICATION SITE PRURITUS [None]
  - DEVICE LEAKAGE [None]
  - DRUG WITHDRAWAL SYNDROME [None]
  - HYPERTENSION [None]
  - NARCOTIC INTOXICATION [None]
  - OVERDOSE [None]
